FAERS Safety Report 22785924 (Version 2)
Quarter: 2024Q3

REPORT INFORMATION
  Report Type: Spontaneous
  Country: US (occurrence: US)
  Receive Date: 20230804
  Receipt Date: 20240802
  Transmission Date: 20241017
  Serious: Yes (Other)
  Sender: ACCORD
  Company Number: US-Accord-275496

PATIENT
  Sex: Female

DRUGS (2)
  1. DOCETAXEL [Suspect]
     Active Substance: DOCETAXEL\DOCETAXEL ANHYDROUS
     Indication: Breast cancer
     Dosage: EVERY 3 WEEKS; C1:139MG; C2-C3: 131MG; C4: 123MG
     Dates: start: 20140428, end: 20140707
  2. CYTOXAN [Suspect]
     Active Substance: CYCLOPHOSPHAMIDE
     Indication: Breast cancer
     Dates: start: 20140428, end: 20140707

REACTIONS (1)
  - Dacryostenosis acquired [Not Recovered/Not Resolved]

NARRATIVE: CASE EVENT DATE: 20140101
